FAERS Safety Report 20669203 (Version 2)
Quarter: 2022Q2

REPORT INFORMATION
  Report Type: Spontaneous
  Country: IN (occurrence: IN)
  Receive Date: 20220404
  Receipt Date: 20220414
  Transmission Date: 20220721
  Serious: Yes (Hospitalization)
  Sender: FDA-Public Use
  Company Number: IN-NOVARTISPH-NVSC2022IN072660

PATIENT
  Age: 49 Year
  Sex: Male

DRUGS (17)
  1. SIMULECT [Suspect]
     Active Substance: BASILIXIMAB
     Indication: Renal transplant
     Dosage: 20 MG
     Route: 042
     Dates: start: 20220301, end: 20220305
  2. PREDNISOLONE [Concomitant]
     Active Substance: PREDNISOLONE
     Indication: Product used for unknown indication
     Dosage: 5 MG, QD ( TILL REVIEW)
     Route: 065
  3. TACROLIMUS [Concomitant]
     Active Substance: TACROLIMUS
     Indication: Product used for unknown indication
     Dosage: 1.5 MG, BID (TILL REVIEW)
     Route: 065
  4. TACROLIMUS [Concomitant]
     Active Substance: TACROLIMUS
     Dosage: 1.75 MG, QD (TILL REVIEW)
     Route: 065
  5. AZORAN [Concomitant]
     Indication: Product used for unknown indication
     Dosage: 100 MG, QD (TILL REVIEW)
     Route: 065
  6. PANTOCID [Concomitant]
     Indication: Product used for unknown indication
     Dosage: 40 MG, QD (TILL REVIEW)
     Route: 065
  7. CALCIUM CARBONATE\CHOLECALCIFEROL [Concomitant]
     Active Substance: CALCIUM CARBONATE\CHOLECALCIFEROL
     Indication: Product used for unknown indication
     Dosage: 500 MG, BID (TILL REVIEW)
     Route: 065
  8. VALGANCICLOVIR [Concomitant]
     Active Substance: VALGANCICLOVIR
     Indication: Product used for unknown indication
     Dosage: 450 MG, QD (2 MONTHS)
     Route: 065
  9. ALPHADOL [Concomitant]
     Indication: Product used for unknown indication
     Dosage: 0.25 UG, QD (TILL REVIEW)
     Route: 065
  10. SEPMAX [Concomitant]
     Indication: Product used for unknown indication
     Dosage: UNK UNK, QD (ALTERNATIVE DAYS)
     Route: 065
  11. OSTEOFOS [Concomitant]
     Indication: Product used for unknown indication
     Dosage: 35 MG, QW
     Route: 065
  12. BECOSULES [Concomitant]
     Indication: Product used for unknown indication
     Dosage: UNK, QD (2 WEEKS)
     Route: 065
  13. FOLVITE [Concomitant]
     Active Substance: FOLIC ACID
     Indication: Product used for unknown indication
     Dosage: 5 MG, QD (2 WEEKS)
     Route: 065
  14. GLYCOMET GP [Concomitant]
     Indication: Product used for unknown indication
     Dosage: 0.5 MG, BID (TILL REVIEW)
     Route: 065
  15. LASIX [Concomitant]
     Active Substance: FUROSEMIDE
     Indication: Product used for unknown indication
     Dosage: 40 MG, QD (TILL REVIEW)
     Route: 065
  16. LANTUS [Concomitant]
     Active Substance: INSULIN GLARGINE
     Indication: Product used for unknown indication
     Dosage: UNK, BID (15 UNITS WITH BREAKFAST)
     Route: 065
  17. INSULIN LISPRO [Concomitant]
     Active Substance: INSULIN LISPRO
     Indication: Product used for unknown indication
     Dosage: UNK, TID (8 UNITS)
     Route: 065

REACTIONS (9)
  - Kidney transplant rejection [Unknown]
  - Tubulointerstitial nephritis [Unknown]
  - Arterial fibrosis [Unknown]
  - Oedematous kidney [Unknown]
  - IgA nephropathy [Unknown]
  - Urine output decreased [Unknown]
  - Hypotension [Unknown]
  - Blood creatinine increased [Unknown]
  - Oedema peripheral [Unknown]

NARRATIVE: CASE EVENT DATE: 20220319
